FAERS Safety Report 6310504-2 (Version None)
Quarter: 2009Q3

REPORT INFORMATION
  Report Type: 
  Country: None (occurrence: None)
  Receive Date: 20090811
  Receipt Date: 20090611
  Transmission Date: 20100115
  Serious: Yes (Other)
  Sender: FDA-Public Use
  Company Number: 1000006754

PATIENT
  Age: 61 Year
  Sex: Female

DRUGS (14)
  1. SAVELLA [Suspect]
     Indication: FIBROMYALGIA
     Dosage: SEE IMAGE
     Route: 048
     Dates: start: 20090521, end: 20090521
  2. SAVELLA [Suspect]
     Indication: FIBROMYALGIA
     Dosage: SEE IMAGE
     Route: 048
     Dates: start: 20090522, end: 20090524
  3. SAVELLA [Suspect]
     Indication: FIBROMYALGIA
     Dosage: SEE IMAGE
     Route: 048
     Dates: start: 20090525, end: 20090528
  4. SAVELLA [Suspect]
     Indication: FIBROMYALGIA
     Dosage: SEE IMAGE
     Route: 048
     Dates: start: 20090529, end: 20090531
  5. METOPROLOL [Concomitant]
  6. EVISTA [Concomitant]
  7. LIPITOR [Concomitant]
  8. NEXIUM [Concomitant]
  9. FLEXERIL [Concomitant]
  10. LORAZEPAM [Concomitant]
  11. LASIX [Concomitant]
  12. LOMOTIL [Concomitant]
  13. LIDODERM [Concomitant]
  14. NASACORT (INHALANT) [Concomitant]

REACTIONS (1)
  - SUICIDAL IDEATION [None]
